FAERS Safety Report 7130193-7 (Version None)
Quarter: 2010Q4

REPORT INFORMATION
  Report Type: 
  Country: None (occurrence: None)
  Receive Date: 20101116
  Receipt Date: 20101101
  Transmission Date: 20110411
  Serious: Yes (Hospitalization, Other)
  Sender: FDA-Public Use
  Company Number: 2010BI038955

PATIENT
  Age: 52 Year
  Sex: Male

DRUGS (15)
  1. ZEVALIN [Suspect]
     Indication: B-CELL LYMPHOMA
     Dosage: 1030 MBQ; 1X; IV
     Route: 042
     Dates: start: 20100119, end: 20100126
  2. ZEVALIN [Suspect]
     Indication: FOLLICLE CENTRE LYMPHOMA, FOLLICULAR GRADE I, II, III STAGE II
     Dosage: 1030 MBQ; 1X; IV
     Route: 042
     Dates: start: 20100119, end: 20100126
  3. RITUXIMAB [Concomitant]
  4. OTHER ANALGESICS AND ANTIPYRETICS [Concomitant]
  5. ANTIHISTAMINES [Concomitant]
  6. OMEPRAL [Concomitant]
  7. LASIX [Concomitant]
  8. CRAVIT [Concomitant]
  9. ITRIZOLE [Concomitant]
  10. VICCLOX [Concomitant]
  11. RITUXIMAB [Concomitant]
  12. CYCLOPHOSPHAMIDE [Concomitant]
  13. DOXORUBICIN [Concomitant]
  14. VINCRISTINE [Concomitant]
  15. PREDNISOLONE [Concomitant]

REACTIONS (7)
  - HAEMATOCRIT DECREASED [None]
  - HAEMOGLOBIN DECREASED [None]
  - NEUTROPHIL COUNT DECREASED [None]
  - PLATELET COUNT DECREASED [None]
  - RED BLOOD CELL COUNT DECREASED [None]
  - SEPSIS [None]
  - WHITE BLOOD CELL COUNT DECREASED [None]
